FAERS Safety Report 22599154 (Version 2)
Quarter: 2023Q2

REPORT INFORMATION
  Report Type: Spontaneous
  Country: RO (occurrence: RO)
  Receive Date: 20230614
  Receipt Date: 20230620
  Transmission Date: 20230721
  Serious: Yes (Other)
  Sender: FDA-Public Use
  Company Number: RO-TOLMAR, INC.-23RO041359

PATIENT
  Age: 69 Year

DRUGS (4)
  1. ELIGARD [Suspect]
     Active Substance: LEUPROLIDE ACETATE
     Indication: Prostate cancer
     Dosage: 45 MILLIGRAM, Q 6 MONTH
     Dates: start: 201601, end: 202005
  2. ELIGARD [Suspect]
     Active Substance: LEUPROLIDE ACETATE
     Indication: Prostate cancer
     Dosage: UNK
  3. BICALUTAMIDE [Suspect]
     Active Substance: BICALUTAMIDE
     Indication: Prostate cancer
     Dosage: 50 MILLIGRAM, QD
     Route: 048
     Dates: start: 201601, end: 202005
  4. BICALUTAMIDE [Suspect]
     Active Substance: BICALUTAMIDE
     Dosage: 50 MILLIGRAM, QD
     Route: 048
     Dates: start: 202006

REACTIONS (7)
  - Pericardial effusion [Unknown]
  - Prostatic specific antigen increased [Not Recovered/Not Resolved]
  - Paraesthesia [Unknown]
  - Weight decreased [Unknown]
  - Back pain [Unknown]
  - Asthenia [Unknown]
  - Fatigue [Unknown]
